FAERS Safety Report 20869843 (Version 1)
Quarter: 2022Q2

REPORT INFORMATION
  Report Type: Other
  Country: US (occurrence: None)
  Receive Date: 20220525
  Receipt Date: 20220525
  Transmission Date: 20220721
  Serious: Yes (Other)
  Sender: FDA-Public Use
  Company Number: US-ROCHE-3100581

PATIENT
  Sex: Male

DRUGS (1)
  1. OCREVUS [Suspect]
     Active Substance: OCRELIZUMAB
     Indication: Relapsing multiple sclerosis
     Dosage: YES; INITIAL 300MG ON DAY 1 AND DAY 14 AND 600MG FOR EVERY 6 MONTHS, DATE OF TREATMENT: 16/DEC/2021,
     Route: 042
     Dates: start: 20200819

REACTIONS (2)
  - Nasopharyngitis [Unknown]
  - Multiple sclerosis [Unknown]
